FAERS Safety Report 4549255-3 (Version None)
Quarter: 2005Q1

REPORT INFORMATION
  Report Type: 
  Country: None (occurrence: None)
  Receive Date: 20041230
  Receipt Date: 20040527
  Transmission Date: 20050727
  Serious: Yes (Hospitalization)
  Sender: FDA-Public Use
  Company Number: 04-05-0776

PATIENT
  Age: 41 Year
  Sex: Male

DRUGS (3)
  1. CLOZAPINE [Suspect]
     Indication: ALCOHOLISM
     Dosage: 150-600MG QD ORAL
     Route: 048
     Dates: start: 20020301
  2. CLOZAPINE [Suspect]
     Indication: SCHIZOAFFECTIVE DISORDER
     Dosage: 150-600MG QD ORAL
     Route: 048
     Dates: start: 20020301
  3. OXYCONTIN [Concomitant]

REACTIONS (1)
  - DEPRESSION [None]
